FAERS Safety Report 8898077 (Version 1)
Quarter: 2012Q4

REPORT INFORMATION
  Report Type: 
  Country: US (occurrence: US)
  Receive Date: 20121108
  Receipt Date: 20121108
  Transmission Date: 20130627
  Serious: No
  Sender: FDA-Public Use
  Company Number: US-AMGEN-USASP2012024549

PATIENT
  Age: 46 Year
  Sex: Female
  Weight: 83.9 kg

DRUGS (3)
  1. ENBREL [Suspect]
     Indication: PSORIASIS
     Dosage: 50 mg, qwk
     Route: 058
  2. PRAVASTATIN [Concomitant]
     Dosage: 10 mg, UNK
     Route: 048
  3. PRILOSEC                           /00661201/ [Concomitant]
     Dosage: 20 mg, UNK
     Route: 048

REACTIONS (1)
  - Drug ineffective [Unknown]
